FAERS Safety Report 10064299 (Version 2)
Quarter: 2014Q2

REPORT INFORMATION
  Report Type: Spontaneous
  Country: IT (occurrence: IT)
  Receive Date: 20140408
  Receipt Date: 20140526
  Transmission Date: 20141212
  Serious: Yes (Other)
  Sender: FDA-Public Use
  Company Number: IT-ACCORD-022945

PATIENT
  Age: 56 Year
  Sex: Female
  Weight: 59 kg

DRUGS (2)
  1. GRANISETRON KABI [Concomitant]
     Indication: PREMEDICATION
     Dosage: 1MG/ML , 5 GLASS VIAL TO 3ML
     Route: 042
     Dates: start: 20140325, end: 20140325
  2. PACLITAXEL ACCORD [Suspect]
     Indication: OVARIAN CANCER
     Dosage: 6MG/ML, 1 GLASS BOTTLE TO 300MG/50ML
     Route: 042
     Dates: start: 20140325, end: 20140325

REACTIONS (4)
  - Back pain [Recovered/Resolved]
  - Bronchospasm [Recovered/Resolved]
  - Rash [Recovered/Resolved]
  - Atrial fibrillation [Recovered/Resolved]
